FAERS Safety Report 13898908 (Version 1)
Quarter: 2017Q3

REPORT INFORMATION
  Report Type: Spontaneous
  Country: IT (occurrence: IT)
  Receive Date: 20170824
  Receipt Date: 20170824
  Transmission Date: 20171127
  Serious: Yes (Congenital Anomaly, Other)
  Sender: FDA-Public Use
  Company Number: IT-VIIV HEALTHCARE LIMITED-IT2017GSK129554

PATIENT

DRUGS (2)
  1. TIVICAY [Suspect]
     Active Substance: DOLUTEGRAVIR SODIUM
     Indication: HIV INFECTION
     Dosage: 50 MG, QD
     Route: 064
     Dates: start: 20150601, end: 20150715
  2. KIVEXA [Concomitant]
     Active Substance: ABACAVIR SULFATE\LAMIVUDINE
     Indication: HIV INFECTION
     Dosage: 900 MG, UNK
     Route: 064
     Dates: start: 20140501

REACTIONS (3)
  - Foetal exposure during pregnancy [Unknown]
  - Foetal malformation [Recovered/Resolved]
  - Fat tissue increased [Recovered/Resolved]

NARRATIVE: CASE EVENT DATE: 20150715
